FAERS Safety Report 5637441-0 (Version None)
Quarter: 2008Q1

REPORT INFORMATION
  Report Type: 
  Country: None (occurrence: None)
  Receive Date: 20080225
  Receipt Date: 20080221
  Transmission Date: 20080703
  Serious: Yes (Death, Hospitalization)
  Sender: FDA-Public Use
  Company Number: CA-BOEHRINGER INGELHEIM GMBH, GERMANY-2008-CN-00084CN

PATIENT
  Sex: Male

DRUGS (1)
  1. CATAPRES [Suspect]

REACTIONS (1)
  - INFECTION [None]
